FAERS Safety Report 9145898 (Version 1)
Quarter: 2013Q1

REPORT INFORMATION
  Report Type: Spontaneous
  Country: US (occurrence: US)
  Receive Date: 20130307
  Receipt Date: 20130307
  Transmission Date: 20140127
  Serious: No
  Sender: FDA-Public Use
  Company Number: US-009507513-1303USA002080

PATIENT
  Age: 25 Year
  Sex: Female

DRUGS (1)
  1. NEXPLANON [Suspect]
     Indication: CONTRACEPTION
     Dosage: 1 DF, UNK
     Route: 059
     Dates: start: 20130225

REACTIONS (6)
  - Tenderness [Unknown]
  - Abscess drainage [Unknown]
  - Implant site swelling [Unknown]
  - Implant site erythema [Unknown]
  - Implant site abscess [Unknown]
  - Implant site cellulitis [Unknown]
